FAERS Safety Report 4496911-1 (Version None)
Quarter: 2004Q4

REPORT INFORMATION
  Report Type: 
  Country: None (occurrence: None)
  Receive Date: 20041109
  Receipt Date: 20041104
  Transmission Date: 20050328
  Serious: Yes (Other)
  Sender: FDA-Public Use
  Company Number: GB-MERCK-0411GBR00056

PATIENT
  Age: 72 Year
  Sex: Female

DRUGS (6)
  1. ZETIA [Suspect]
     Indication: HYPERCHOLESTEROLAEMIA
     Route: 048
     Dates: start: 20040929
  2. FUROSEMIDE [Concomitant]
     Route: 065
  3. WARFARIN [Concomitant]
     Route: 065
  4. DIGOXIN [Concomitant]
     Route: 065
  5. CLOPIDOGREL BISULFATE [Concomitant]
     Route: 065
  6. LACTULOSE [Concomitant]
     Route: 065

REACTIONS (2)
  - JOINT STIFFNESS [None]
  - MUSCULOSKELETAL STIFFNESS [None]
